FAERS Safety Report 23159225 (Version 3)
Quarter: 2024Q2

REPORT INFORMATION
  Report Type: Spontaneous
  Country: US (occurrence: US)
  Receive Date: 20231108
  Receipt Date: 20240408
  Transmission Date: 20240716
  Serious: No
  Sender: FDA-Public Use
  Company Number: US-BAYER-2023A154730

PATIENT
  Age: 50 Year
  Sex: Male

DRUGS (2)
  1. BETASERON [Suspect]
     Active Substance: INTERFERON BETA-1B
     Dosage: INJECT 1 ML SQ QOD
     Route: 058
  2. DEVICE [Suspect]
     Active Substance: DEVICE

REACTIONS (3)
  - Product dose omission issue [Unknown]
  - Device operational issue [None]
  - Expired device used [None]

NARRATIVE: CASE EVENT DATE: 20231026
